FAERS Safety Report 14963409 (Version 1)
Quarter: 2018Q2

REPORT INFORMATION
  Report Type: Spontaneous
  Country: US (occurrence: US)
  Receive Date: 20180510
  Receipt Date: 20180510
  Transmission Date: 20180711
  Serious: No
  Sender: FDA-Public Use
  Company Number: None

PATIENT
  Age: 51 Year
  Sex: Female

DRUGS (11)
  1. NOVOLOG [Suspect]
     Active Substance: INSULIN ASPART
  2. JARDIANCE [Concomitant]
     Active Substance: EMPAGLIFLOZIN
  3. METOPROLOL TARTRATE. [Concomitant]
     Active Substance: METOPROLOL TARTRATE
  4. LOSARTAN. [Concomitant]
     Active Substance: LOSARTAN
  5. FENTANYL. [Concomitant]
     Active Substance: FENTANYL
  6. ROSUVASTATIN. [Concomitant]
     Active Substance: ROSUVASTATIN
  7. DECARA [Concomitant]
  8. LANTUS [Concomitant]
     Active Substance: INSULIN GLARGINE
  9. TRAJENTA [Concomitant]
     Active Substance: LINAGLIPTIN
  10. IBRANCE [Suspect]
     Active Substance: PALBOCICLIB
     Indication: LIP NEOPLASM MALIGNANT STAGE UNSPECIFIED
     Route: 048
     Dates: start: 20171130
  11. IBUPROFEN. [Concomitant]
     Active Substance: IBUPROFEN

REACTIONS (1)
  - Brain neoplasm [None]

NARRATIVE: CASE EVENT DATE: 20180510
